FAERS Safety Report 22246544 (Version 1)
Quarter: 2023Q2

REPORT INFORMATION
  Report Type: Spontaneous
  Country: US (occurrence: None)
  Receive Date: 20230421
  Receipt Date: 20230421
  Transmission Date: 20230722
  Serious: Yes (Other)
  Sender: FDA-Public Use
  Company Number: None

PATIENT
  Sex: Female

DRUGS (2)
  1. GLATIRAMER [Suspect]
     Active Substance: GLATIRAMER
     Indication: Multiple sclerosis
     Route: 058
     Dates: start: 20210806
  2. BETAMETH VAL CRE 0.1% [Concomitant]

REACTIONS (22)
  - Pain [None]
  - Balance disorder [None]
  - Constipation [None]
  - Fatigue [None]
  - Alopecia [None]
  - Alopecia [None]
  - Cardiac disorder [None]
  - Injection related reaction [None]
  - Nausea [None]
  - Skin disorder [None]
  - Sleep disorder [None]
  - Paraesthesia [None]
  - Gastrointestinal disorder [None]
  - Cognitive disorder [None]
  - Musculoskeletal stiffness [None]
  - Muscle spasticity [None]
  - Sensory disturbance [None]
  - Multiple sclerosis relapse [None]
  - Visual impairment [None]
  - Hypoaesthesia [None]
  - Hypoaesthesia [None]
  - Paraesthesia [None]
